FAERS Safety Report 8746131 (Version 3)
Quarter: 2013Q2

REPORT INFORMATION
  Report Type: Spontaneous
  Country: SE (occurrence: SE)
  Receive Date: 20120827
  Receipt Date: 20130528
  Transmission Date: 20140414
  Serious: Yes (Hospitalization, Other)
  Sender: FDA-Public Use
  Company Number: PHHY2012SE072503

PATIENT
  Sex: Male

DRUGS (2)
  1. GLIVEC [Suspect]
     Indication: CHRONIC MYELOID LEUKAEMIA
     Dosage: UNK
     Dates: start: 200904, end: 201204
  2. SPRYCEL [Suspect]
     Indication: CHRONIC MYELOID LEUKAEMIA

REACTIONS (8)
  - Myalgia [Unknown]
  - Pyrexia [Unknown]
  - Chills [Unknown]
  - Diabetes mellitus [Recovering/Resolving]
  - Bone marrow disorder [Unknown]
  - Hypertension [Unknown]
  - Drug ineffective [Unknown]
  - Drug resistance [Unknown]
